FAERS Safety Report 9924552 (Version 1)
Quarter: 2014Q1

REPORT INFORMATION
  Report Type: Spontaneous
  Country: FR (occurrence: None)
  Receive Date: 20140220
  Receipt Date: 20140220
  Transmission Date: 20141002
  Serious: Yes (Hospitalization, Other)
  Sender: FDA-Public Use
  Company Number: 2014000046

PATIENT
  Age: 85 Year
  Sex: Male

DRUGS (6)
  1. ACEON [Suspect]
     Indication: HYPERTENSION
     Route: 048
     Dates: start: 2012
  2. ATENOLOL [Suspect]
     Indication: HYPERTENSION
     Route: 048
     Dates: start: 2008, end: 2014
  3. KARDEGIC (ACETYLSALICYLATE LYSINE) [Concomitant]
  4. EUPANTOL (PANTOPRAZOLE SODIUM SESQUIHYDREATE) [Concomitant]
  5. CITALOPRAM (CITALOPRAM) [Concomitant]
  6. DEPAMIDE (VALPROMIDE) [Concomitant]

REACTIONS (7)
  - Loss of consciousness [None]
  - Bradycardia [None]
  - Confusional state [None]
  - Orthostatic hypotension [None]
  - Malaise [None]
  - Iatrogenic injury [None]
  - Fall [None]
